FAERS Safety Report 8369088-X (Version None)
Quarter: 2012Q2

REPORT INFORMATION
  Report Type: 
  Country: None (occurrence: None)
  Receive Date: 20120516
  Receipt Date: 20120516
  Transmission Date: 20120825
  Serious: Yes (Hospitalization, Disabling)
  Sender: FDA-Public Use
  Company Number: None

PATIENT
  Age: 38 Year
  Sex: Female
  Weight: 70.3075 kg

DRUGS (2)
  1. LUPRON DEPOT [Suspect]
     Indication: ENDOMETRIOSIS
     Dates: start: 20120106, end: 20120427
  2. LUPRON DEPOT [Suspect]
     Indication: ENDOMETRIOSIS
     Dates: start: 20120427

REACTIONS (8)
  - IMPAIRED HEALING [None]
  - OEDEMA PERIPHERAL [None]
  - INJECTION SITE HAEMORRHAGE [None]
  - SKIN DISCOLOURATION [None]
  - INJECTION SITE SWELLING [None]
  - PAIN IN EXTREMITY [None]
  - PURULENCE [None]
  - INJECTION SITE REACTION [None]
